FAERS Safety Report 9172583 (Version 1)
Quarter: 2012Q4

REPORT INFORMATION
  Report Type: 
  Country: KR (occurrence: KR)
  Receive Date: 20120911
  Receipt Date: 20120911
  Transmission Date: 20130627
  Serious: Yes (Hospitalization, Other)
  Sender: FDA-Public Use
  Company Number: PHHY2012KR078264

PATIENT
  Age: 60 Year
  Sex: Male

DRUGS (5)
  1. SEBIVO [Suspect]
     Indication: HEPATITIS B
     Dosage: 600 mg, QD
     Route: 048
     Dates: start: 20120521
  2. HEPSERA [Suspect]
     Indication: HEPATITIS B
     Dosage: 10 mg, UNK
     Dates: start: 20100820, end: 20120521
  3. ENTECAVIR [Suspect]
     Indication: HEPATITIS B
     Dosage: 1 mg, UNK
     Dates: start: 20100820, end: 20120521
  4. VIREAD [Suspect]
     Indication: HEPATITIS B
     Dosage: 300 mg, QD
     Route: 048
     Dates: start: 20120521, end: 20120617
  5. VIREAD [Suspect]
     Dosage: 300 mg, QOD
     Dates: start: 20120618

REACTIONS (7)
  - Bone fragmentation [Unknown]
  - Blood creatinine increased [Unknown]
  - Creatinine renal clearance decreased [Unknown]
  - Asthenia [Not Recovered/Not Resolved]
  - Fatigue [Not Recovered/Not Resolved]
  - Eyelid oedema [Recovering/Resolving]
  - Blood creatine phosphokinase increased [Unknown]
